FAERS Safety Report 9889553 (Version 1)
Quarter: 2014Q1

REPORT INFORMATION
  Report Type: Report from Study
  Country: US (occurrence: US)
  Receive Date: 20140211
  Receipt Date: 20140211
  Transmission Date: 20141002
  Serious: Yes (Death)
  Sender: FDA-Public Use
  Company Number: US-BAXTER-2014BAX006486

PATIENT
  Age: 56 Year
  Sex: Female

DRUGS (3)
  1. DOBUTAMINE HYDROCHLORIDE IN 5% DEXTROSE INJECTION [Suspect]
     Indication: STRESS ECHOCARDIOGRAM
     Route: 042
  2. DOBUTAMINE HYDROCHLORIDE IN 5% DEXTROSE INJECTION [Suspect]
     Indication: OFF LABEL USE
     Dosage: INCREASING DOSAGES
     Route: 042
  3. DOBUTAMINE HYDROCHLORIDE IN 5% DEXTROSE INJECTION [Suspect]
     Route: 042

REACTIONS (1)
  - Acute myocardial infarction [Fatal]
